FAERS Safety Report 8618911 (Version 4)
Quarter: 2012Q4

REPORT INFORMATION
  Report Type: Report from Study
  Country: GB (occurrence: GB)
  Receive Date: 20120618
  Receipt Date: 20120830
  Transmission Date: 20130627
  Serious: Yes (Hospitalization)
  Sender: FDA-Public Use
  Company Number: GB-JNJFOC-20120604968

PATIENT
  Age: 15 Year
  Sex: Male
  Weight: 53.7 kg

DRUGS (5)
  1. REMICADE [Suspect]
     Indication: CROHN^S DISEASE
     Route: 042
     Dates: start: 20080911
  2. HUMIRA [Suspect]
     Indication: PRODUCT USED FOR UNKNOWN INDICATION
     Dates: start: 20090708
  3. AZATHIOPRINE [Concomitant]
  4. SODIUM CHLORIDE [Concomitant]
  5. CALCICHEW D3 [Concomitant]

REACTIONS (1)
  - Brain stem infarction [Recovered/Resolved with Sequelae]
